FAERS Safety Report 25729722 (Version 3)
Quarter: 2025Q4

REPORT INFORMATION
  Report Type: Spontaneous
  Country: US (occurrence: US)
  Receive Date: 20250827
  Receipt Date: 20251106
  Transmission Date: 20260118
  Serious: No
  Sender: LUPIN
  Company Number: US-LUPIN PHARMACEUTICALS INC.-2025-07518

PATIENT

DRUGS (1)
  1. GAVILAX [Suspect]
     Active Substance: POLYETHYLENE GLYCOL 3350
     Indication: Constipation
     Dosage: MORE THAN 17 G QD

REACTIONS (4)
  - Increased dose administered [Unknown]
  - Incorrect product administration duration [Unknown]
  - Product packaging quantity issue [Unknown]
  - No adverse event [Unknown]
